FAERS Safety Report 19891727 (Version 1)
Quarter: 2021Q3

REPORT INFORMATION
  Report Type: Spontaneous
  Country: CN (occurrence: CN)
  Receive Date: 20210928
  Receipt Date: 20210928
  Transmission Date: 20211014
  Serious: Yes (Hospitalization, Other)
  Sender: FDA-Public Use
  Company Number: CN-BAYER-2021A215849

PATIENT
  Age: 47 Year
  Sex: Male
  Weight: 53.5 kg

DRUGS (1)
  1. GLUCOBAY [Suspect]
     Active Substance: ACARBOSE
     Indication: TYPE 2 DIABETES MELLITUS
     Dosage: 0.1 G, TID
     Route: 048
     Dates: start: 20110901, end: 20210912

REACTIONS (16)
  - Ileostomy [Recovered/Resolved]
  - Nausea [Recovering/Resolving]
  - Vomiting [Recovering/Resolving]
  - Pneumonitis [None]
  - Pyelocaliectasis [None]
  - Cholelithiasis [None]
  - Rectal cancer [None]
  - Cancer surgery [Recovered/Resolved]
  - Abdominal pain [Recovering/Resolving]
  - Abdominal distension [Recovering/Resolving]
  - Intestinal obstruction [Recovering/Resolving]
  - Stomal hernia [Recovered/Resolved]
  - Renal atrophy [None]
  - Nephrolithiasis [None]
  - Pulmonary mass [None]
  - Ureteric dilatation [None]

NARRATIVE: CASE EVENT DATE: 2018
